FAERS Safety Report 9887857 (Version 1)
Quarter: 2013Q4

REPORT INFORMATION
  Report Type: Spontaneous
  Country: US (occurrence: None)
  Receive Date: 20131223
  Receipt Date: 20131223
  Transmission Date: 20140711
  Serious: Yes (Other)
  Sender: FDA-Public Use
  Company Number: 221375LEO

PATIENT
  Age: 71 Year
  Sex: Female

DRUGS (4)
  1. PICATO (0.05%, GEL) [Suspect]
     Indication: ACTINIC KERATOSIS
     Dosage: 2 TUBES AT 6PM, TOPICAL
     Route: 061
     Dates: start: 20130407
  2. LISINOPRIL (LISINOPRIL) [Concomitant]
  3. HCTZ (HYDROCHLOROTHIAZIDE) [Concomitant]
  4. LEVOTHYROXINE (LEVOTHYROXINE) [Concomitant]

REACTIONS (16)
  - Chest discomfort [None]
  - Chest pain [None]
  - Dyspnoea [None]
  - Hypersensitivity [None]
  - Lip swelling [None]
  - Swollen tongue [None]
  - Hypoaesthesia oral [None]
  - Application site erythema [None]
  - Application site vesicles [None]
  - Swelling face [None]
  - Drug administered at inappropriate site [None]
  - Off label use [None]
  - Incorrect dose administered [None]
  - Inappropriate schedule of drug administration [None]
  - Drug administration error [None]
  - Incorrect drug administration duration [None]
